FAERS Safety Report 7101675-9 (Version None)
Quarter: 2010Q4

REPORT INFORMATION
  Report Type: 
  Country: None (occurrence: None)
  Receive Date: 20101115
  Receipt Date: 20101029
  Transmission Date: 20110411
  Serious: Yes (Hospitalization)
  Sender: FDA-Public Use
  Company Number: US-BAYER-201027359NA

PATIENT
  Age: 25 Year
  Sex: Female
  Weight: 47 kg

DRUGS (6)
  1. YAZ [Suspect]
     Indication: CONTRACEPTION
     Dosage: START: 2004 OR 2005
     Route: 048
     Dates: end: 20090101
  2. YASMIN [Suspect]
     Indication: CONTRACEPTION
     Dosage: START: 2004 OR 2005
     Route: 048
     Dates: end: 20090101
  3. OCELLA [Suspect]
     Indication: CONTRACEPTION
     Dosage: START: 2004 OR 2005
     Dates: end: 20090101
  4. IBUPROFEN [Concomitant]
  5. FLUOXETINE [Concomitant]
     Indication: DEPRESSION
  6. OXCARBAZEPINE [Concomitant]
     Indication: DEPRESSION

REACTIONS (5)
  - CARDIOVASCULAR DISORDER [None]
  - CHEST PAIN [None]
  - DYSPNOEA [None]
  - HEART RATE IRREGULAR [None]
  - PAIN [None]
